FAERS Safety Report 13781233 (Version 2)
Quarter: 2017Q3

REPORT INFORMATION
  Report Type: Spontaneous
  Country: FR (occurrence: FR)
  Receive Date: 20170724
  Receipt Date: 20170802
  Transmission Date: 20171127
  Serious: Yes (Other)
  Sender: FDA-Public Use
  Company Number: FR-SA-2017SA081992

PATIENT
  Age: 32 Year
  Sex: Female

DRUGS (1)
  1. AUBAGIO [Suspect]
     Active Substance: TERIFLUNOMIDE
     Indication: MULTIPLE SCLEROSIS
     Route: 048
     Dates: start: 201509, end: 201703

REACTIONS (2)
  - Exposure during pregnancy [Unknown]
  - Abortion induced [Unknown]

NARRATIVE: CASE EVENT DATE: 2017
